FAERS Safety Report 14820939 (Version 1)
Quarter: 2018Q2

REPORT INFORMATION
  Report Type: Spontaneous
  Country: US (occurrence: US)
  Receive Date: 20180427
  Receipt Date: 20180427
  Transmission Date: 20180711
  Serious: Yes (Hospitalization)
  Sender: FDA-Public Use
  Company Number: US-ELI_LILLY_AND_COMPANY-US201804009516

PATIENT
  Age: 64 Year
  Sex: Female

DRUGS (2)
  1. TRULICITY [Suspect]
     Active Substance: DULAGLUTIDE
     Indication: TYPE 2 DIABETES MELLITUS
     Dosage: 0.75 MG, UNKNOWN
     Route: 058
     Dates: start: 201501
  2. METFORMIN [Concomitant]
     Active Substance: METFORMIN HYDROCHLORIDE
     Indication: TYPE 2 DIABETES MELLITUS
     Dosage: 850 MG, DAILY
     Dates: start: 2014

REACTIONS (11)
  - Blood glucose decreased [Unknown]
  - Vomiting [Recovered/Resolved]
  - Asthma [Recovering/Resolving]
  - Irritable bowel syndrome [Not Recovered/Not Resolved]
  - Bronchitis [Recovered/Resolved]
  - Salivary hypersecretion [Not Recovered/Not Resolved]
  - Gastritis [Not Recovered/Not Resolved]
  - Hypersensitivity [Recovering/Resolving]
  - Inappropriate schedule of drug administration [Unknown]
  - Secretion discharge [Not Recovered/Not Resolved]
  - Pain [Not Recovered/Not Resolved]

NARRATIVE: CASE EVENT DATE: 201510
